FAERS Safety Report 6825635-8 (Version None)
Quarter: 2010Q3

REPORT INFORMATION
  Report Type: 
  Country: None (occurrence: None)
  Receive Date: 20100709
  Receipt Date: 20100303
  Transmission Date: 20110219
  Serious: Yes (Other)
  Sender: FDA-Public Use
  Company Number: US-ASTRAZENECA-2009SE21029

PATIENT
  Age: 16230 Day
  Sex: Female
  Weight: 81.6 kg

DRUGS (6)
  1. SEROQUEL [Suspect]
     Route: 048
     Dates: start: 20030609
  2. PRINIVIL [Concomitant]
     Dates: start: 20030609
  3. PROZAC [Concomitant]
     Dates: start: 20030609
  4. XANAX [Concomitant]
     Dates: start: 20051128
  5. KLONOPIN [Concomitant]
     Dates: start: 20051128
  6. LEXAPRO [Concomitant]
     Dosage: 10 MG 4 TABLETS QAM
     Dates: start: 20051128

REACTIONS (3)
  - DIABETES MELLITUS [None]
  - DIABETIC FOOT [None]
  - VISION BLURRED [None]
